FAERS Safety Report 8479150-9 (Version None)
Quarter: 2012Q2

REPORT INFORMATION
  Report Type: 
  Country: None (occurrence: None)
  Receive Date: 20120629
  Receipt Date: 20120619
  Transmission Date: 20120825
  Serious: Yes (Hospitalization)
  Sender: FDA-Public Use
  Company Number: JP-ABBOTT-12P-087-0926189-00

PATIENT
  Sex: Male
  Weight: 52 kg

DRUGS (5)
  1. COLCHICINE [Concomitant]
     Indication: BEHCET'S SYNDROME
     Route: 051
     Dates: start: 20061219
  2. HUMIRA [Suspect]
     Route: 058
     Dates: start: 20110301, end: 20120320
  3. HUMIRA [Suspect]
     Indication: BEHCET'S SYNDROME
     Dosage: BASELINE
     Route: 058
     Dates: start: 20110204, end: 20110204
  4. HUMIRA [Suspect]
     Dosage: INDUCTION:  BASELINE
     Route: 058
     Dates: start: 20110219, end: 20110219
  5. IMURAN [Concomitant]
     Indication: BEHCET'S SYNDROME
     Route: 048
     Dates: start: 20070502

REACTIONS (1)
  - AUTOIMMUNE THYROIDITIS [None]
